FAERS Safety Report 6608341-4 (Version None)
Quarter: 2010Q1

REPORT INFORMATION
  Report Type: 
  Country: None (occurrence: None)
  Receive Date: 20100223
  Receipt Date: 20100210
  Transmission Date: 20100710
  Serious: Yes (Other)
  Sender: FDA-Public Use
  Company Number: A-NJ2010-33780

PATIENT
  Age: 61 Year
  Sex: Female

DRUGS (3)
  1. VENTAVIS [Suspect]
     Indication: PULMONARY ARTERIAL HYPERTENSION
     Dosage: 5 UG, 6-9 X PER DAY, RESPIRATORY; 2.5 UG, RESPIRATORYUG
     Route: 055
     Dates: start: 20100202, end: 20100203
  2. VENTAVIS [Suspect]
     Indication: PULMONARY ARTERIAL HYPERTENSION
     Dosage: 5 UG, 6-9 X PER DAY, RESPIRATORY; 2.5 UG, RESPIRATORYUG
     Route: 055
     Dates: start: 20100204
  3. TRACLEER [Concomitant]

REACTIONS (3)
  - CHEST DISCOMFORT [None]
  - CHEST PAIN [None]
  - PARAESTHESIA [None]
